FAERS Safety Report 18250560 (Version 1)
Quarter: 2020Q3

REPORT INFORMATION
  Report Type: Report from Study
  Country: CA (occurrence: CA)
  Receive Date: 20200909
  Receipt Date: 20200909
  Transmission Date: 20201103
  Serious: Yes (Death)
  Sender: FDA-Public Use
  Company Number: CA-EXELIXIS-CABO-20032700

PATIENT
  Age: 69 Year
  Sex: Male

DRUGS (9)
  1. CABOMETYX [Suspect]
     Active Substance: CABOZANTINIB S-MALATE
     Indication: RENAL CELL CARCINOMA
     Dosage: 40 MG, QD
     Route: 048
     Dates: start: 20200826
  2. ATORVASTATIN [Concomitant]
     Active Substance: ATORVASTATIN
  3. CENTRUM [Concomitant]
     Active Substance: VITAMINS
  4. METONIA [Concomitant]
     Active Substance: METOCLOPRAMIDE
  5. TOLOXIN [Concomitant]
     Active Substance: DIGOXIN
  6. PANTOPRAZOLE [Concomitant]
     Active Substance: PANTOPRAZOLE
  7. VITAMIN B12 [Concomitant]
     Active Substance: CYANOCOBALAMIN
  8. MIDODRINE [Concomitant]
     Active Substance: MIDODRINE
  9. SENOKOT [Concomitant]
     Active Substance: SENNOSIDES

REACTIONS (1)
  - Death [Fatal]

NARRATIVE: CASE EVENT DATE: 20200902
